FAERS Safety Report 10558306 (Version 2)
Quarter: 2014Q4

REPORT INFORMATION
  Report Type: Spontaneous
  Country: US (occurrence: US)
  Receive Date: 20141031
  Receipt Date: 20141031
  Transmission Date: 20150529
  Serious: Yes (Death)
  Sender: FDA-Public Use
  Company Number: US-ARIAD PHARMACEUTICALS, INC-2014US003323

PATIENT

DRUGS (3)
  1. ICLUSIG [Suspect]
     Active Substance: PONATINIB
     Indication: GENE MUTATION
  2. ICLUSIG [Suspect]
     Active Substance: PONATINIB
     Indication: BRAIN NEOPLASM MALIGNANT
     Dosage: 45 MG, QD
     Route: 048
     Dates: start: 20140524
  3. ICLUSIG [Suspect]
     Active Substance: PONATINIB
     Indication: PROSTATE CANCER

REACTIONS (2)
  - Product use issue [Unknown]
  - Death [Fatal]

NARRATIVE: CASE EVENT DATE: 2014
